FAERS Safety Report 11610797 (Version 2)
Quarter: 2016Q2

REPORT INFORMATION
  Report Type: Spontaneous
  Country: DK (occurrence: DK)
  Receive Date: 20151008
  Receipt Date: 20160601
  Transmission Date: 20160815
  Serious: Yes (Disabling, Other)
  Sender: FDA-Public Use
  Company Number: DK-JNJFOC-20151001997

PATIENT
  Age: 16 Year
  Sex: Female
  Weight: 69 kg

DRUGS (1)
  1. REMICADE [Suspect]
     Active Substance: INFLIXIMAB
     Indication: CROHN^S DISEASE
     Route: 042
     Dates: start: 2014, end: 20150831

REACTIONS (2)
  - Crohn^s disease [Not Recovered/Not Resolved]
  - Diaphragm muscle weakness [Not Recovered/Not Resolved]

NARRATIVE: CASE EVENT DATE: 20150501
